FAERS Safety Report 6961371-5 (Version None)
Quarter: 2010Q3

REPORT INFORMATION
  Report Type: 
  Country: None (occurrence: None)
  Receive Date: 20100901
  Receipt Date: 20100825
  Transmission Date: 20110219
  Serious: Yes (Hospitalization)
  Sender: FDA-Public Use
  Company Number: B0672445A

PATIENT
  Sex: Female
  Weight: 95 kg

DRUGS (2)
  1. TOPOTECAN [Suspect]
     Dosage: 1.49MG CYCLIC
     Route: 042
     Dates: start: 20100719
  2. CISPLATIN [Suspect]
     Dosage: 99.5MG CYCLIC
     Route: 042
     Dates: start: 20100719

REACTIONS (1)
  - HYPERGLYCAEMIA [None]
